FAERS Safety Report 5298055-8 (Version None)
Quarter: 2007Q2

REPORT INFORMATION
  Report Type: 
  Country: None (occurrence: None)
  Receive Date: 20070416
  Receipt Date: 20070405
  Transmission Date: 20071010
  Serious: Yes (Other)
  Sender: FDA-Public Use
  Company Number: JP-JNJFOC-20070401983

PATIENT
  Sex: Female

DRUGS (5)
  1. RISPERDAL [Suspect]
     Indication: SCHIZOPHRENIA
     Route: 048
  2. VEGETAMIN [Suspect]
     Indication: DRUG USE FOR UNKNOWN INDICATION
     Route: 048
  3. SERTRALINE HYDROCHLORIDE [Concomitant]
     Route: 048
  4. HALCION [Concomitant]
     Route: 048
  5. ARIPIPRAZOLE [Concomitant]
     Route: 048

REACTIONS (2)
  - BLOOD IMMUNOGLOBULIN A DECREASED [None]
  - ERYTHEMA MULTIFORME [None]
